FAERS Safety Report 10099227 (Version 3)
Quarter: 2015Q3

REPORT INFORMATION
  Report Type: Spontaneous
  Country: US (occurrence: US)
  Receive Date: 20140423
  Receipt Date: 20150813
  Transmission Date: 20151125
  Serious: No
  Sender: FDA-Public Use
  Company Number: US-GILEAD-2013-0068427

PATIENT
  Age: 16 Year
  Sex: Male

DRUGS (6)
  1. LETAIRIS [Suspect]
     Active Substance: AMBRISENTAN
     Indication: PULMONARY VASCULAR DISORDER
  2. LETAIRIS [Suspect]
     Active Substance: AMBRISENTAN
     Indication: PULMONARY ARTERIAL HYPERTENSION
     Dosage: 5 MG, QD
     Dates: start: 20120120
  3. ADCIRCA [Suspect]
     Active Substance: TADALAFIL
  4. LETAIRIS [Suspect]
     Active Substance: AMBRISENTAN
     Indication: ASTHMA
  5. LETAIRIS [Suspect]
     Active Substance: AMBRISENTAN
     Indication: ASPERGER^S DISORDER
  6. LETAIRIS [Suspect]
     Active Substance: AMBRISENTAN
     Indication: CYTOGENETIC ABNORMALITY

REACTIONS (1)
  - Syncope [Unknown]
